FAERS Safety Report 9898440 (Version 1)
Quarter: 2014Q1

REPORT INFORMATION
  Report Type: Spontaneous
  Country: US (occurrence: US)
  Receive Date: 20140214
  Receipt Date: 20140214
  Transmission Date: 20141002
  Serious: Yes (Disabling, Other)
  Sender: FDA-Public Use
  Company Number: US-PFIZER INC-2014040361

PATIENT
  Age: 50 Year
  Sex: Female
  Weight: 77.1 kg

DRUGS (2)
  1. LYRICA [Suspect]
     Indication: FIBROMYALGIA
     Dosage: 150 MG, 3X/DAY
     Dates: start: 2005
  2. LYRICA [Suspect]
     Indication: ARTHRITIS
     Dosage: 150 MG, AS NEEDED

REACTIONS (7)
  - Respiratory failure [Unknown]
  - Impaired gastric emptying [Unknown]
  - Coma [Unknown]
  - Musculoskeletal disorder [Unknown]
  - Hypokinesia [Unknown]
  - Intentional drug misuse [Unknown]
  - Myalgia [Unknown]
